FAERS Safety Report 9889682 (Version 1)
Quarter: 2014Q1

REPORT INFORMATION
  Report Type: Spontaneous
  Country: NO (occurrence: NO)
  Receive Date: 20140211
  Receipt Date: 20140211
  Transmission Date: 20141002
  Serious: Yes (Death, Other)
  Sender: FDA-Public Use
  Company Number: NO-PFIZER INC-2014039074

PATIENT
  Sex: 0

DRUGS (15)
  1. SIMVASTATIN [Suspect]
     Dosage: UNK
  2. KETOBEMIDONE HCL [Interacting]
     Dosage: UNK
  3. MORPHINE SULFATE [Interacting]
     Dosage: UNK
  4. OXAZEPAM [Interacting]
     Dosage: UNK
  5. TRAMADOL HCL [Interacting]
     Dosage: UNK
  6. FENTANYL [Interacting]
     Dosage: UNK
  7. ACETAMINOPHEN [Interacting]
     Dosage: UNK
  8. ASPIRIN [Interacting]
     Dosage: UNK
  9. BUPRENORPHINE [Interacting]
     Dosage: UNK
  10. DIAZEPAM [Interacting]
     Dosage: UNK
  11. DIGITOXIN [Interacting]
     Dosage: UNK
  12. HYDROCHLOROTHIAZIDE [Interacting]
     Dosage: UNK
  13. MIDAZOLAM [Interacting]
     Dosage: UNK
  14. OXYCODONE [Interacting]
     Dosage: UNK
  15. WARFARIN SODIUM [Interacting]
     Dosage: UNK

REACTIONS (2)
  - Death [Fatal]
  - Drug interaction [Unknown]
